FAERS Safety Report 17644370 (Version 2)
Quarter: 2022Q3

REPORT INFORMATION
  Report Type: Spontaneous
  Country: US (occurrence: US)
  Receive Date: 20200408
  Receipt Date: 20220913
  Transmission Date: 20221026
  Serious: No
  Sender: FDA-Public Use
  Company Number: US-PFIZER INC-2020142306

PATIENT
  Age: 77 Year
  Sex: Female

DRUGS (1)
  1. EUCRISA [Suspect]
     Active Substance: CRISABOROLE
     Indication: Dermatitis allergic
     Dosage: APPLY TO AFFECTED AREA(S) TWICE DAILY
     Dates: start: 2019

REACTIONS (4)
  - Therapeutic product effect incomplete [Unknown]
  - Rash macular [Unknown]
  - Off label use [Unknown]
  - Visual impairment [Unknown]
